FAERS Safety Report 4918555-7 (Version None)
Quarter: 2006Q1

REPORT INFORMATION
  Report Type: 
  Country: None (occurrence: None)
  Receive Date: 20060217
  Receipt Date: 20060217
  Transmission Date: 20060701
  Serious: Yes (Hospitalization)
  Sender: FDA-Public Use
  Company Number: None

PATIENT
  Age: 40 Year
  Sex: Male
  Weight: 96.3 kg

DRUGS (7)
  1. CLOZAPINE [Suspect]
     Indication: SCHIZOAFFECTIVE DISORDER
     Dosage: 2 TABLETS BEDTIME PO
     Route: 048
     Dates: start: 20050902, end: 20051017
  2. CLOZAPINE [Suspect]
     Indication: SCHIZOAFFECTIVE DISORDER
     Dosage: 2 TABLETS BEDTIME PO
     Route: 048
     Dates: start: 20050902, end: 20051017
  3. DEPAKOTE [Concomitant]
  4. CEFTRIAZONE [Concomitant]
  5. ZOSYN [Concomitant]
  6. AZITHROMYCIN [Concomitant]
  7. AUGMENTIN '125' [Concomitant]

REACTIONS (1)
  - NEUTROPENIA [None]
